FAERS Safety Report 26181061 (Version 1)
Quarter: 2025Q4

REPORT INFORMATION
  Report Type: Spontaneous
  Country: US (occurrence: US)
  Receive Date: 20251221
  Receipt Date: 20251221
  Transmission Date: 20260118
  Serious: No
  Sender: BIOGEN
  Company Number: US-BIOGEN-2094941

PATIENT
  Sex: Female

DRUGS (1)
  1. PLEGRIDY [Suspect]
     Active Substance: PEGINTERFERON BETA-1A
     Indication: Product used for unknown indication

REACTIONS (3)
  - Drug delivery system malfunction [Unknown]
  - Injection site haemorrhage [Not Recovered/Not Resolved]
  - Injection site injury [Not Recovered/Not Resolved]
